FAERS Safety Report 17376607 (Version 2)
Quarter: 2020Q2

REPORT INFORMATION
  Report Type: Spontaneous
  Country: CA (occurrence: CA)
  Receive Date: 20200206
  Receipt Date: 20200528
  Transmission Date: 20200713
  Serious: Yes (Other)
  Sender: FDA-Public Use
  Company Number: CA-GLAXOSMITHKLINE-CA2020AMR018088

PATIENT
  Sex: Female

DRUGS (7)
  1. CIPRO [Suspect]
     Active Substance: CIPROFLOXACIN HYDROCHLORIDE
     Indication: NEPHROLITHIASIS
     Dosage: UNK
  2. MACROBID [Suspect]
     Active Substance: NITROFURANTOIN\NITROFURANTOIN MONOHYDRATE
     Indication: NEPHROLITHIASIS
     Dosage: UNK
     Dates: end: 20200128
  3. ACCUTANE [Suspect]
     Active Substance: ISOTRETINOIN
     Indication: EAR DISCOMFORT
     Dosage: UNK
  4. BENLYSTA [Suspect]
     Active Substance: BELIMUMAB
     Indication: SYSTEMIC LUPUS ERYTHEMATOSUS
     Dosage: UNK
     Route: 058
  5. OLMETEC [Suspect]
     Active Substance: OLMESARTAN MEDOXOMIL
     Indication: BLOOD PRESSURE MEASUREMENT
     Dosage: UNK
  6. CYMBALTA [Suspect]
     Active Substance: DULOXETINE HYDROCHLORIDE
     Dosage: 60 MG
  7. CYMBALTA [Suspect]
     Active Substance: DULOXETINE HYDROCHLORIDE
     Indication: PAIN
     Dosage: 30 MG

REACTIONS (31)
  - Blood cholesterol [Unknown]
  - Poor quality sleep [Unknown]
  - Arthralgia [Unknown]
  - Gait disturbance [Unknown]
  - Social problem [Unknown]
  - Hand deformity [Unknown]
  - Nasopharyngitis [Unknown]
  - Product dose omission [Unknown]
  - Urine abnormality [Recovered/Resolved]
  - Personality change due to a general medical condition [Unknown]
  - Pain [Unknown]
  - Blood pressure decreased [Unknown]
  - Arthritis [Unknown]
  - Varicose vein [Unknown]
  - Inflammation [Unknown]
  - Calcinosis [Unknown]
  - Kidney infection [Unknown]
  - Skin induration [Unknown]
  - Spinal disorder [Unknown]
  - Blood pressure increased [Unknown]
  - Vein disorder [Unknown]
  - Multiple allergies [Unknown]
  - Arthropathy [Unknown]
  - Drug ineffective [Unknown]
  - Nephrolithiasis [Unknown]
  - SLE arthritis [Unknown]
  - Renal disorder [Unknown]
  - Loss of personal independence in daily activities [Unknown]
  - Joint dislocation [Unknown]
  - Walking aid user [Unknown]
  - Hypersomnia [Unknown]
